FAERS Safety Report 6730598-X (Version None)
Quarter: 2010Q2

REPORT INFORMATION
  Report Type: 
  Country: None (occurrence: None)
  Receive Date: 20100514
  Receipt Date: 20100505
  Transmission Date: 20101027
  Serious: Yes (Hospitalization)
  Sender: FDA-Public Use
  Company Number: 583959

PATIENT
  Age: 3 Year
  Sex: Female

DRUGS (7)
  1. GENTAMICIN SULFATE [Suspect]
     Indication: NEUTROPENIA
  2. GENTAMICIN SULFATE [Suspect]
     Indication: PYREXIA
  3. VINCRISTINE SULFATE [Suspect]
     Indication: PRECURSOR B-LYMPHOBLASTIC LYMPHOMA
  4. METHOTREXATE [Suspect]
     Indication: PRECURSOR B-LYMPHOBLASTIC LYMPHOMA
  5. PIPERACILLIN AND TAZOBACTAM [Suspect]
     Indication: NEUTROPENIA
  6. PIPERACILLIN AND TAZOBACTAM [Suspect]
     Indication: PYREXIA
  7. NYSTATIN [Concomitant]

REACTIONS (13)
  - CANDIDIASIS [None]
  - CENTRAL NERVOUS SYSTEM LESION [None]
  - GASTRIC ULCER [None]
  - GASTROINTESTINAL HAEMORRHAGE [None]
  - HAEMOGLOBIN DECREASED [None]
  - HEPATIC STEATOSIS [None]
  - HEPATOSPLENOMEGALY [None]
  - INTESTINAL ULCER [None]
  - LIVER ABSCESS [None]
  - NEUTROPENIA [None]
  - RENAL DISORDER [None]
  - SPLENIC LESION [None]
  - VASCULITIS NECROTISING [None]
